FAERS Safety Report 4331788-6 (Version None)
Quarter: 2004Q2

REPORT INFORMATION
  Report Type: 
  Country: None (occurrence: None)
  Receive Date: 20040405
  Receipt Date: 20030814
  Transmission Date: 20050107
  Serious: No
  Sender: FDA-Public Use
  Company Number: US-GLAXOSMITHKLINE-A0421223A

PATIENT
  Age: 40 Year
  Sex: Female
  Weight: 68.2 kg

DRUGS (3)
  1. FLOVENT [Suspect]
     Indication: ASTHMA
     Dosage: 2PUFF TWICE PER DAY
     Route: 055
  2. ASMACORT [Concomitant]
     Indication: ASTHMA
     Route: 065
  3. ALBUTEROL [Concomitant]
     Indication: ASTHMA
     Dosage: 2PUFF AS REQUIRED
     Route: 055

REACTIONS (1)
  - ASTHMA [None]
